FAERS Safety Report 6903753-3 (Version None)
Quarter: 2010Q3

REPORT INFORMATION
  Report Type: 
  Country: None (occurrence: None)
  Receive Date: 20100804
  Receipt Date: 20081209
  Transmission Date: 20110219
  Serious: No
  Sender: FDA-Public Use
  Company Number: US-PFIZER INC-2008099271

PATIENT
  Sex: Female
  Weight: 84.1 kg

DRUGS (5)
  1. LYRICA [Suspect]
     Dosage: 50 MG, 1X/DAY
     Dates: start: 20080101
  2. MUSCLE RELAXANTS [Concomitant]
  3. DRUG, UNSPECIFIED [Concomitant]
  4. VITAMIN TAB [Concomitant]
  5. GLUCOSAMINE [Concomitant]

REACTIONS (4)
  - ARTHRALGIA [None]
  - DRUG INEFFECTIVE [None]
  - MUSCULOSKELETAL PAIN [None]
  - PAIN IN EXTREMITY [None]
